FAERS Safety Report 10651501 (Version 1)
Quarter: 2014Q4

REPORT INFORMATION
  Report Type: Spontaneous
  Country: US (occurrence: None)
  Receive Date: 20141212
  Receipt Date: 20141212
  Transmission Date: 20150529
  Serious: Yes (Death)
  Sender: FDA-Public Use
  Company Number: None

PATIENT
  Age: 58 Year
  Sex: Female

DRUGS (2)
  1. SIMEPREVIR 150MG JANSSEN [Suspect]
     Active Substance: SIMEPREVIR
     Route: 048
  2. SOFOABUVIR [Suspect]
     Active Substance: SOFOSBUVIR
     Indication: HEPATITIS C
     Route: 048
     Dates: start: 20140627, end: 201409

REACTIONS (8)
  - Hepatitis C [None]
  - Ascites [None]
  - Hyponatraemia [None]
  - Dyspnoea [None]
  - Encephalopathy [None]
  - Blood bilirubin increased [None]
  - Renal injury [None]
  - International normalised ratio increased [None]

NARRATIVE: CASE EVENT DATE: 20140930
